FAERS Safety Report 18570285 (Version 1)
Quarter: 2020Q4

REPORT INFORMATION
  Report Type: Spontaneous
  Country: US (occurrence: US)
  Receive Date: 20201202
  Receipt Date: 20201202
  Transmission Date: 20210114
  Serious: Yes (Life-Threatening)
  Sender: FDA-Public Use
  Company Number: None

PATIENT
  Age: 78 Year
  Sex: Male
  Weight: 77.11 kg

DRUGS (1)
  1. AMIODARONE (AMIODARONE HCL 50MG/ML INJ, 3ML) [Suspect]
     Active Substance: AMIODARONE HYDROCHLORIDE
     Indication: ATRIAL FIBRILLATION
     Dosage: ?          OTHER STRENGTH:50MG/ML, 3ML;?
     Route: 042
     Dates: start: 20201019, end: 20201019

REACTIONS (3)
  - Agitation [None]
  - Respiratory distress [None]
  - Aggression [None]

NARRATIVE: CASE EVENT DATE: 20201019
